FAERS Safety Report 18546554 (Version 5)
Quarter: 2021Q1

REPORT INFORMATION
  Report Type: Spontaneous
  Country: US (occurrence: US)
  Receive Date: 20201125
  Receipt Date: 20210331
  Transmission Date: 20210419
  Serious: Yes (Hospitalization, Other)
  Sender: FDA-Public Use
  Company Number: US-PFIZER INC-2020334571

PATIENT
  Age: 71 Year
  Sex: Female

DRUGS (1)
  1. XELJANZ [Suspect]
     Active Substance: TOFACITINIB CITRATE
     Dosage: 5 MG
     Route: 048

REACTIONS (12)
  - Pain [Unknown]
  - Myalgia [Unknown]
  - Asthenia [Unknown]
  - Anaemia [Unknown]
  - Blood calcium decreased [Unknown]
  - Fatigue [Unknown]
  - Depression [Unknown]
  - Headache [Unknown]
  - Plantar fasciitis [Unknown]
  - Dementia [Unknown]
  - Drug ineffective [Unknown]
  - Blood pressure increased [Unknown]

NARRATIVE: CASE EVENT DATE: 202012
